FAERS Safety Report 8585872-1 (Version None)
Quarter: 2012Q3

REPORT INFORMATION
  Report Type: 
  Country: None (occurrence: None)
  Receive Date: 20120810
  Receipt Date: 20120802
  Transmission Date: 20120928
  Serious: Yes (Other)
  Sender: FDA-Public Use
  Company Number: US-ASTRAZENECA-2011SE32237

PATIENT
  Age: 58 Year
  Sex: Female

DRUGS (20)
  1. ZOLOFT [Concomitant]
     Dates: start: 20090722
  2. ROLAIDS [Concomitant]
     Indication: GASTROOESOPHAGEAL REFLUX DISEASE
     Dates: start: 19690101, end: 20070601
  3. NADOLOL [Concomitant]
     Indication: HEART RATE IRREGULAR
     Dates: start: 20081006
  4. NEXIUM [Suspect]
     Route: 048
     Dates: start: 20090217
  5. MILK OF MAGNESIUM [Concomitant]
     Indication: GASTROOESOPHAGEAL REFLUX DISEASE
     Dates: start: 19690101, end: 20070601
  6. SERTRALINE HYDROCHLORIDE [Concomitant]
     Dates: start: 20090217
  7. DARVOCET-N 50 [Concomitant]
     Indication: FRACTURE
     Dates: start: 20090418
  8. METHYLPREDNISOLONE [Concomitant]
     Dates: start: 20090217
  9. NEXIUM [Suspect]
     Indication: GASTROOESOPHAGEAL REFLUX DISEASE
     Route: 048
     Dates: start: 20070618
  10. BISMUTH SUBSALICYLATE [Concomitant]
     Indication: GASTROOESOPHAGEAL REFLUX DISEASE
     Dates: start: 19690101, end: 20070601
  11. SERTRALINE HYDROCHLORIDE [Concomitant]
     Indication: DEPRESSION
     Dates: start: 20060101
  12. CYCLOBENZAPRINE [Concomitant]
     Dates: start: 20090217
  13. VITAMIN B-12 [Concomitant]
     Indication: METABOLIC DISORDER
  14. NEXIUM [Suspect]
     Route: 048
     Dates: start: 20080829
  15. NADOLOL [Concomitant]
     Dates: start: 20090217
  16. OTC TUMS [Concomitant]
     Indication: GASTROOESOPHAGEAL REFLUX DISEASE
     Dates: start: 19690101, end: 20070601
  17. ALKA SELTZER [Concomitant]
     Indication: GASTROOESOPHAGEAL REFLUX DISEASE
     Dates: start: 19690101, end: 20070601
  18. SERTRALINE HYDROCHLORIDE [Concomitant]
     Dates: start: 20080829
  19. GINSENG [Concomitant]
     Indication: ASTHENIA
  20. CYCLOBENZAPRINE [Concomitant]
     Dates: start: 20081022

REACTIONS (9)
  - INTERVERTEBRAL DISC DISPLACEMENT [None]
  - CERVICAL SPINAL STENOSIS [None]
  - FALL [None]
  - RADICULOPATHY [None]
  - LOWER LIMB FRACTURE [None]
  - OSTEOGENESIS IMPERFECTA [None]
  - ANKLE FRACTURE [None]
  - ARTHRITIS [None]
  - FIBULA FRACTURE [None]
